FAERS Safety Report 17246597 (Version 16)
Quarter: 2021Q1

REPORT INFORMATION
  Report Type: Report from Study
  Country: US (occurrence: US)
  Receive Date: 20200108
  Receipt Date: 20210116
  Transmission Date: 20210419
  Serious: Yes (Hospitalization, Other)
  Sender: FDA-Public Use
  Company Number: NVSC2020US002662

PATIENT
  Age: 1 Year
  Sex: Male
  Weight: 9.48 kg

DRUGS (6)
  1. TREPROSTINIL. [Suspect]
     Active Substance: TREPROSTINIL
     Dosage: 17.75 NG/KG/MIN
     Route: 042
  2. TREPROSTINIL. [Suspect]
     Active Substance: TREPROSTINIL
     Dosage: 19 NG/KG/MIN, CONTINUOUS
     Route: 042
  3. TRACLEER [Suspect]
     Active Substance: BOSENTAN
     Indication: PRODUCT USED FOR UNKNOWN INDICATION
     Dosage: UNK
     Route: 065
  4. TREPROSTINIL. [Suspect]
     Active Substance: TREPROSTINIL
     Dosage: 19 NG/KG/MIN, CONTINUOUS
     Route: 042
  5. TREPROSTINIL. [Suspect]
     Active Substance: TREPROSTINIL
     Indication: PULMONARY ARTERIAL HYPERTENSION
     Dosage: 19 NG/KG/MIN, CONTINUOUS
     Route: 042
     Dates: start: 20191219
  6. SILDENAFIL CITRATE. [Concomitant]
     Active Substance: SILDENAFIL CITRATE
     Indication: PRODUCT USED FOR UNKNOWN INDICATION
     Dosage: UNK
     Route: 065

REACTIONS (21)
  - Febrile convulsion [Recovered/Resolved]
  - Tracheitis [Unknown]
  - Vascular device infection [Unknown]
  - Blood potassium increased [Unknown]
  - Drug ineffective [Unknown]
  - Lower respiratory tract infection [Unknown]
  - Pyrexia [Unknown]
  - Salivary hypersecretion [Unknown]
  - N-terminal prohormone brain natriuretic peptide increased [Unknown]
  - White blood cell count increased [Unknown]
  - Speech disorder [Unknown]
  - Pain [Unknown]
  - Blood calcium decreased [Unknown]
  - Bone pain [Unknown]
  - Hepatocellular carcinoma [Unknown]
  - Hepatoblastoma [Unknown]
  - Myelosuppression [Unknown]
  - Skin irritation [Unknown]
  - Device physical property issue [Unknown]
  - Device leakage [Unknown]
  - Product use issue [Unknown]

NARRATIVE: CASE EVENT DATE: 20200528
